FAERS Safety Report 5626832-X (Version None)
Quarter: 2008Q1

REPORT INFORMATION
  Report Type: 
  Country: None (occurrence: None)
  Receive Date: 20080212
  Receipt Date: 20080127
  Transmission Date: 20080703
  Serious: Yes (Other)
  Sender: FDA-Public Use
  Company Number: 2008S1001586

PATIENT
  Age: 38 Year
  Sex: Female

DRUGS (1)
  1. LEVOTHYROXINE SODIUM [Suspect]
     Indication: HYPOTHYROIDISM
     Dosage: 12.5 UG; DAILY; 12 UG; DAILY

REACTIONS (5)
  - ARTERIOSCLEROSIS CORONARY ARTERY [None]
  - CONDITION AGGRAVATED [None]
  - CORONARY ARTERY STENOSIS [None]
  - HYPOTHYROIDISM [None]
  - MYOCARDIAL ISCHAEMIA [None]
